FAERS Safety Report 8934639 (Version 2)
Quarter: 2013Q1

REPORT INFORMATION
  Report Type: Spontaneous
  Country: US (occurrence: US)
  Receive Date: 20121129
  Receipt Date: 20130319
  Transmission Date: 20140127
  Serious: Yes (Other)
  Sender: FDA-Public Use
  Company Number: US-BAYER-2012-125012

PATIENT
  Age: 69 Year
  Sex: Male
  Weight: 78.91 kg

DRUGS (19)
  1. ALEVE CAPLET/TABLET,MIDOL EXTENDED RELIEF CAPLET [Suspect]
     Indication: PAIN IN EXTREMITY
     Dosage: 1 DF, QD
     Route: 048
     Dates: start: 20121122, end: 20121123
  2. CALCIUM [Concomitant]
  3. URINO [Concomitant]
  4. ZINC [Concomitant]
  5. NIACIN [Concomitant]
  6. ONE A DAY MEN^S HEALTH FORMULA [Concomitant]
  7. MAGNESIUM [Concomitant]
  8. PROTEIN SUPPLEMENTS [Concomitant]
  9. ZEAXANTHIN [Concomitant]
  10. LYSINE [Concomitant]
  11. B12 [Concomitant]
  12. BILBERRY [Concomitant]
  13. FISH OIL [Concomitant]
  14. FLAX SEED OIL [Concomitant]
  15. LECITHIN [Concomitant]
  16. ACIDOPHILUS [Concomitant]
  17. CHROMIUM [Concomitant]
  18. CALAMINE [Concomitant]
  19. PROBIOTICS [Concomitant]

REACTIONS (4)
  - Dermatitis bullous [Recovered/Resolved]
  - Urticaria [Recovered/Resolved]
  - Pruritus [Recovered/Resolved]
  - Rash [Recovered/Resolved]
